FAERS Safety Report 11464282 (Version 1)
Quarter: 2015Q3

REPORT INFORMATION
  Report Type: Spontaneous
  Country: US (occurrence: US)
  Receive Date: 20150831
  Receipt Date: 20150831
  Transmission Date: 20151125
  Serious: No
  Sender: FDA-Public Use
  Company Number: US-ELI_LILLY_AND_COMPANY-US201107007878

PATIENT
  Sex: Female
  Weight: 79.37 kg

DRUGS (5)
  1. CYMBALTA [Suspect]
     Active Substance: DULOXETINE HYDROCHLORIDE
     Dosage: 90 MG, QD
  2. CYMBALTA [Suspect]
     Active Substance: DULOXETINE HYDROCHLORIDE
     Indication: BACK PAIN
     Dosage: 60 MG, QD
  3. ANTIHYPERTENSIVES [Concomitant]
     Active Substance: UNSPECIFIED INGREDIENT
     Indication: BLOOD PRESSURE MEASUREMENT
  4. CYMBALTA [Suspect]
     Active Substance: DULOXETINE HYDROCHLORIDE
     Dosage: 60 MG, QD
  5. CYMBALTA [Suspect]
     Active Substance: DULOXETINE HYDROCHLORIDE
     Dosage: 90 MG, QD

REACTIONS (20)
  - Pruritus [Unknown]
  - Drug ineffective [Not Recovered/Not Resolved]
  - Increased appetite [Unknown]
  - Vision blurred [Unknown]
  - Nervousness [Unknown]
  - Palpitations [Unknown]
  - Peripheral coldness [Unknown]
  - Insomnia [Unknown]
  - Pain [Unknown]
  - Hyperhidrosis [Unknown]
  - Fatigue [Unknown]
  - Bruxism [Unknown]
  - Feeling abnormal [Unknown]
  - Body height decreased [Unknown]
  - Rash [Unknown]
  - Weight increased [Unknown]
  - Gastric dilatation [Unknown]
  - Dyspnoea [Unknown]
  - Memory impairment [Unknown]
  - Headache [Unknown]
